FAERS Safety Report 6079496-8 (Version None)
Quarter: 2009Q1

REPORT INFORMATION
  Report Type: 
  Country: None (occurrence: None)
  Receive Date: 20090216
  Receipt Date: 20090128
  Transmission Date: 20090719
  Serious: No
  Sender: FDA-Public Use
  Company Number: US-ABBOTT-09P-163-0500821-00

PATIENT
  Sex: Male
  Weight: 54.48 kg

DRUGS (5)
  1. DEPAKOTE ER [Suspect]
     Indication: CONVULSION
     Route: 048
     Dates: start: 20070901, end: 20071001
  2. DEPAKOTE [Suspect]
     Indication: CONVULSION
     Dates: start: 20060901, end: 20070901
  3. DEPAKOTE [Suspect]
     Route: 048
     Dates: start: 20071001
  4. CLOMIPRINE [Concomitant]
     Indication: PSYCHOTIC DISORDER
     Dates: start: 20040101
  5. CLOMIPRINE [Concomitant]
     Indication: MAJOR DEPRESSION

REACTIONS (1)
  - GRAND MAL CONVULSION [None]
